FAERS Safety Report 17889357 (Version 1)
Quarter: 2020Q2

REPORT INFORMATION
  Report Type: Report from Study
  Country: IL (occurrence: IL)
  Receive Date: 20200612
  Receipt Date: 20200612
  Transmission Date: 20200714
  Serious: Yes (Hospitalization, Other)
  Sender: FDA-Public Use
  Company Number: PHHY2019IL134649

PATIENT
  Sex: Female

DRUGS (4)
  1. KISQALI [Suspect]
     Active Substance: RIBOCICLIB
     Dosage: 600 MG, QD
     Route: 048
  2. KISQALI [Suspect]
     Active Substance: RIBOCICLIB
     Indication: BREAST CANCER
     Dosage: 600 MG, QD
     Route: 048
     Dates: start: 20190404
  3. KISQALI [Suspect]
     Active Substance: RIBOCICLIB
     Dosage: 400 MG, QD
     Route: 048
  4. KISQALI [Suspect]
     Active Substance: RIBOCICLIB
     Dosage: 400 MG, QD
     Route: 048
     Dates: start: 20191116

REACTIONS (9)
  - Brain oedema [Recovered/Resolved]
  - Headache [Recovered/Resolved]
  - Breast cancer [Unknown]
  - Metastases to neck [Unknown]
  - Metastases to pelvis [Unknown]
  - Central nervous system infection [Unknown]
  - Metastasis [Unknown]
  - Dysuria [Recovered/Resolved]
  - Malignant neoplasm progression [Unknown]
